FAERS Safety Report 4466710-5 (Version None)
Quarter: 2004Q3

REPORT INFORMATION
  Report Type: 
  Country: None (occurrence: None)
  Receive Date: 20040930
  Receipt Date: 20040927
  Transmission Date: 20050211
  Serious: Yes (Hospitalization, Other)
  Sender: FDA-Public Use
  Company Number: KII-2004-0013438

PATIENT
  Age: 44 Year
  Sex: Male

DRUGS (3)
  1. OXYCONTIN [Suspect]
     Dosage: ORAL
     Route: 048
  2. CALCIUM CHANNEL BLOCKERS() [Suspect]
  3. ETHANOL (ETHANOL) [Suspect]

REACTIONS (9)
  - ALCOHOL USE [None]
  - APNOEA [None]
  - COMA [None]
  - LETHARGY [None]
  - MIOSIS [None]
  - MULTIPLE DRUG OVERDOSE [None]
  - OXYGEN SATURATION DECREASED [None]
  - SNORING [None]
  - SOMNOLENCE [None]
